FAERS Safety Report 5550885-0 (Version None)
Quarter: 2007Q4

REPORT INFORMATION
  Report Type: 
  Country: None (occurrence: None)
  Receive Date: 20071212
  Receipt Date: 20070520
  Transmission Date: 20080405
  Serious: No
  Sender: FDA-Public Use
  Company Number: US-AMGEN-KDL225517

PATIENT
  Sex: Male

DRUGS (4)
  1. ENBREL [Suspect]
     Indication: PSORIASIS
     Route: 058
     Dates: start: 20040101
  2. LOVASTATIN [Concomitant]
  3. NEFAZODONE HCL [Concomitant]
  4. ZYPREXA [Concomitant]

REACTIONS (1)
  - PSORIASIS [None]
